FAERS Safety Report 6930216-1 (Version None)
Quarter: 2010Q3

REPORT INFORMATION
  Report Type: 
  Country: None (occurrence: None)
  Receive Date: 20100817
  Receipt Date: 20100817
  Transmission Date: 20110219
  Serious: Yes (Other)
  Sender: FDA-Public Use
  Company Number: None

PATIENT
  Age: 46 Year
  Sex: Female
  Weight: 79.3795 kg

DRUGS (1)
  1. ABILIFY [Suspect]
     Indication: BIPOLAR I DISORDER
     Dosage: DAILY
     Dates: start: 20061001, end: 20070901

REACTIONS (7)
  - BRUXISM [None]
  - DISCOMFORT [None]
  - NO THERAPEUTIC RESPONSE [None]
  - PAIN [None]
  - TONGUE DISORDER [None]
  - TOOTH FRACTURE [None]
  - TREMOR [None]
